FAERS Safety Report 24627734 (Version 2)
Quarter: 2025Q3

REPORT INFORMATION
  Report Type: Report from Study
  Country: ZA (occurrence: ZA)
  Receive Date: 20241116
  Receipt Date: 20250809
  Transmission Date: 20251020
  Serious: Yes (Other)
  Sender: ALEXION PHARMACEUTICALS
  Company Number: ZA-AstraZeneca-CH-00743113A

PATIENT
  Age: 66 Year
  Sex: Female

DRUGS (9)
  1. BUDESONIDE\FORMOTEROL FUMARATE DIHYDRATE [Suspect]
     Active Substance: BUDESONIDE\FORMOTEROL FUMARATE DIHYDRATE
     Indication: Asthma
  2. PREGABALIN [Suspect]
     Active Substance: PREGABALIN
     Indication: Epilepsy
  3. INDAPAMIDE [Suspect]
     Active Substance: INDAPAMIDE
     Indication: Hypertension
  4. DAFIRO [Suspect]
     Active Substance: AMLODIPINE\VALSARTAN
     Indication: Hypertension
  5. ECOTRIN [Suspect]
     Active Substance: ASPIRIN
  6. ZOPICLONE [Suspect]
     Active Substance: ZOPICLONE
     Indication: Sleep disorder
  7. ATORVASTATIN [Suspect]
     Active Substance: ATORVASTATIN
     Indication: Blood cholesterol
  8. METFORMIN HYDROCHLORIDE [Suspect]
     Active Substance: METFORMIN HYDROCHLORIDE
     Indication: Diabetes mellitus
  9. GLICLAZIDE [Suspect]
     Active Substance: GLICLAZIDE
     Indication: Diabetes mellitus

REACTIONS (2)
  - Diabetes mellitus [Unknown]
  - Burning feet syndrome [Unknown]
